FAERS Safety Report 8033203-8 (Version None)
Quarter: 2011Q4

REPORT INFORMATION
  Report Type: 
  Country: None (occurrence: None)
  Receive Date: 20111228
  Receipt Date: 20111221
  Transmission Date: 20120403
  Serious: Yes (Hospitalization)
  Sender: FDA-Public Use
  Company Number: DSA_47453_2011

PATIENT
  Sex: Male

DRUGS (2)
  1. XENAZINE [Suspect]
     Indication: HUNTINGTON'S DISEASE
     Dosage: (25 MG, FREQUENCY UNKNOWN ORAL), (25 MG TID ORAL), (DF ORAL)
     Route: 048
     Dates: start: 20101001
  2. XENAZINE [Suspect]
     Indication: HUNTINGTON'S DISEASE
     Dosage: (25 MG, FREQUENCY UNKNOWN ORAL), (25 MG TID ORAL), (DF ORAL)
     Route: 048
     Dates: start: 20110224

REACTIONS (1)
  - CRYING [None]
